FAERS Safety Report 6235404-8 (Version None)
Quarter: 2009Q2

REPORT INFORMATION
  Report Type: 
  Country: None (occurrence: None)
  Receive Date: 20090618
  Receipt Date: 20090227
  Transmission Date: 20091009
  Serious: No
  Sender: FDA-Public Use
  Company Number: US-ASTRAZENECA-2009UW05571

PATIENT
  Age: 10 Year
  Sex: Male
  Weight: 31.8 kg

DRUGS (1)
  1. ENTOCORT EC [Suspect]
     Indication: CROHN'S DISEASE
     Route: 048
     Dates: start: 20081101

REACTIONS (2)
  - INSOMNIA [None]
  - IRRITABILITY [None]
